FAERS Safety Report 18769295 (Version 1)
Quarter: 2021Q1

REPORT INFORMATION
  Report Type: Spontaneous
  Country: CA (occurrence: CA)
  Receive Date: 20210121
  Receipt Date: 20210121
  Transmission Date: 20210419
  Serious: Yes (Hospitalization)
  Sender: FDA-Public Use
  Company Number: CA-MYLANLABS-2021M1003790

PATIENT
  Age: 54 Year
  Sex: Female

DRUGS (1)
  1. ATORVASTATIN [Suspect]
     Active Substance: ATORVASTATIN
     Indication: DYSLIPIDAEMIA
     Dosage: 40 MILLIGRAM, QD
     Route: 065
     Dates: start: 201710

REACTIONS (3)
  - Restrictive pulmonary disease [Recovered/Resolved]
  - Immune-mediated myositis [Recovered/Resolved]
  - Dermatomyositis [Recovered/Resolved]

NARRATIVE: CASE EVENT DATE: 201810
